FAERS Safety Report 4266854-7 (Version None)
Quarter: 2004Q1

REPORT INFORMATION
  Report Type: 
  Country: None (occurrence: None)
  Receive Date: 20040108
  Receipt Date: 20031006
  Transmission Date: 20041129
  Serious: Yes (Hospitalization)
  Sender: FDA-Public Use
  Company Number: WAES 0310FRA00018

PATIENT
  Age: 82 Year
  Sex: Male

DRUGS (8)
  1. MIDAMOR [Suspect]
     Indication: ACUTE PULMONARY OEDEMA
     Route: 048
     Dates: start: 20010101, end: 20030906
  2. AMLODIPINE BESYLATE [Concomitant]
     Route: 048
  3. ASPIRIN LYSINE [Concomitant]
     Route: 048
  4. FUROSEMIDE [Concomitant]
     Route: 048
  5. NITROGLYCERIN [Concomitant]
     Indication: CORONARY ARTERY INSUFFICIENCY
     Route: 061
  6. POTASSIUM CHLORIDE [Concomitant]
     Route: 048
  7. PRAVASTATIN SODIUM [Concomitant]
     Route: 048
  8. PROPRANOLOL HYDROCHLORIDE [Concomitant]
     Route: 048

REACTIONS (2)
  - MYELODYSPLASTIC SYNDROME [None]
  - PLATELET COUNT DECREASED [None]
